FAERS Safety Report 8910116 (Version 1)
Quarter: 2012Q4

REPORT INFORMATION
  Report Type: 
  Country: FR (occurrence: FR)
  Receive Date: 20121115
  Receipt Date: 20121115
  Transmission Date: 20130627
  Serious: Yes (Hospitalization, Other)
  Sender: FDA-Public Use
  Company Number: FR-BRISTOL-MYERS SQUIBB COMPANY-17109331

PATIENT
  Age: 69 Year
  Sex: Female

DRUGS (5)
  1. APROVEL TABS 300 MG [Suspect]
     Route: 048
     Dates: end: 20120822
  2. LYSANXIA [Suspect]
     Dosage: 02-Jul-2012 to 28-Jul-2012,16Aug-22Aug12
     Route: 048
     Dates: start: 20120702, end: 20120822
  3. HALDOL [Suspect]
     Dates: start: 20120816, end: 20120820
  4. RISPERDAL [Suspect]
     Dosage: 02-Jul-2012 to 28-Jul-2012,16Aug-20Aug12
     Route: 048
     Dates: start: 20120702, end: 20120820
  5. SEROQUEL [Suspect]
     Dosage: Seroquel LP,02-Jul-2012 to 28-Jul-2012,16Aug-20Aug12
     Route: 048
     Dates: start: 20120702, end: 20120820

REACTIONS (2)
  - Dermatitis bullous [Recovered/Resolved]
  - Neuroleptic malignant syndrome [Unknown]
